FAERS Safety Report 5105177-0 (Version None)
Quarter: 2006Q3

REPORT INFORMATION
  Report Type: 
  Country: None (occurrence: None)
  Receive Date: 20060911
  Receipt Date: 20060829
  Transmission Date: 20061208
  Serious: Yes (Other)
  Sender: FDA-Public Use
  Company Number: 2006105772

PATIENT
  Age: 44 Year
  Sex: Female
  Weight: 56.246 kg

DRUGS (3)
  1. NEURONTIN [Suspect]
     Indication: NERVE INJURY
     Dosage: (INTERVAL: EVERYDAT), UNKNOWN
  2. LYRICA [Suspect]
     Indication: NERVE INJURY
     Dosage: 100 MG (50 MG, 2 IN 1 D), UNKNWON
  3. PROMETHAZINE [Suspect]
     Indication: INFLUENZA

REACTIONS (8)
  - ANTICHOLINERGIC SYNDROME [None]
  - DISTURBANCE IN ATTENTION [None]
  - DRUG EFFECT INCREASED [None]
  - EUPHORIC MOOD [None]
  - FATIGUE [None]
  - INFLUENZA [None]
  - NAUSEA [None]
  - OEDEMA PERIPHERAL [None]
